FAERS Safety Report 21105190 (Version 1)
Quarter: 2022Q3

REPORT INFORMATION
  Report Type: Spontaneous
  Country: US (occurrence: None)
  Receive Date: 20220719
  Receipt Date: 20220719
  Transmission Date: 20221026
  Serious: Yes (Other)
  Sender: FDA-Public Use
  Company Number: None

PATIENT
  Age: 46 Year
  Sex: Female
  Weight: 78.3 kg

DRUGS (1)
  1. INJECTAFER [Suspect]
     Active Substance: FERRIC CARBOXYMALTOSE
     Indication: Anaemia
     Dosage: OTHER FREQUENCY : X2, Q 7 DAYS APART;?
     Route: 041
     Dates: start: 20220719, end: 20220719

REACTIONS (6)
  - Erythema [None]
  - Anxiety [None]
  - Pruritus [None]
  - Nausea [None]
  - Dyspnoea [None]
  - Adverse drug reaction [None]

NARRATIVE: CASE EVENT DATE: 20220719
